FAERS Safety Report 7454900-9 (Version None)
Quarter: 2011Q2

REPORT INFORMATION
  Report Type: 
  Country: None (occurrence: None)
  Receive Date: 20110425
  Receipt Date: 20110413
  Transmission Date: 20111010
  Serious: Yes (Other)
  Sender: FDA-Public Use
  Company Number: DKLU1069961

PATIENT
  Age: 8 Year
  Sex: Female

DRUGS (4)
  1. DOXORUBICIN HCL [Suspect]
     Indication: ACUTE LYMPHOCYTIC LEUKAEMIA
  2. DEXAMETHASONE [Suspect]
     Indication: ACUTE LYMPHOCYTIC LEUKAEMIA
  3. VINCRISTINE [Suspect]
     Indication: ACUTE LYMPHOCYTIC LEUKAEMIA
  4. ELSPAR [Suspect]
     Indication: ACUTE LYMPHOCYTIC LEUKAEMIA

REACTIONS (5)
  - CONVULSION [None]
  - HYPOREFLEXIA [None]
  - MENTAL IMPAIRMENT [None]
  - BLOOD PRESSURE INCREASED [None]
  - POSTERIOR REVERSIBLE ENCEPHALOPATHY SYNDROME [None]
